FAERS Safety Report 23118716 (Version 1)
Quarter: 2023Q4

REPORT INFORMATION
  Report Type: Report from Study
  Country: MX (occurrence: MX)
  Receive Date: 20231028
  Receipt Date: 20231028
  Transmission Date: 20240110
  Serious: Yes (Hospitalization)
  Sender: FDA-Public Use
  Company Number: MX-002147023-NVSC2023MX173161

PATIENT
  Sex: Male

DRUGS (1)
  1. GILENYA [Suspect]
     Active Substance: FINGOLIMOD HYDROCHLORIDE
     Indication: Multiple sclerosis
     Dosage: 0.5 MG, QD
     Route: 048
     Dates: start: 20210511

REACTIONS (6)
  - Cholecystitis [Unknown]
  - Abdominal pain upper [Recovering/Resolving]
  - Ulcer [Unknown]
  - Weight decreased [Unknown]
  - Discomfort [Unknown]
  - Increased appetite [Not Recovered/Not Resolved]
